FAERS Safety Report 22222546 (Version 1)
Quarter: 2023Q2

REPORT INFORMATION
  Report Type: Spontaneous
  Country: US (occurrence: None)
  Receive Date: 20230417
  Receipt Date: 20230417
  Transmission Date: 20230721
  Serious: Yes (Other)
  Sender: FDA-Public Use
  Company Number: None

PATIENT
  Age: 59 Year
  Sex: Male
  Weight: 101.25 kg

DRUGS (6)
  1. DULOXETINE [Suspect]
     Active Substance: DULOXETINE
     Indication: Depression
     Dosage: 1 CAPSULE DAILY ORAL
     Route: 048
  2. Fenofibrate 160mg tablets [Concomitant]
  3. Welchol 625mg [Concomitant]
  4. LAMOTRIGINE [Concomitant]
     Active Substance: LAMOTRIGINE
  5. VYVANSE [Concomitant]
     Active Substance: LISDEXAMFETAMINE DIMESYLATE
  6. Walgreens Multivitamin for Men 50+ [Concomitant]

REACTIONS (8)
  - Product substitution issue [None]
  - Withdrawal syndrome [None]
  - Neuralgia [None]
  - Electric shock sensation [None]
  - Pyrexia [None]
  - Chills [None]
  - Headache [None]
  - Product quality issue [None]

NARRATIVE: CASE EVENT DATE: 20230416
